FAERS Safety Report 11218763 (Version 1)
Quarter: 2015Q2

REPORT INFORMATION
  Report Type: Spontaneous
  Country: AU (occurrence: AU)
  Receive Date: 20150625
  Receipt Date: 20150625
  Transmission Date: 20150821
  Serious: Yes (Other)
  Sender: FDA-Public Use
  Company Number: AU-PFIZER INC-2015208340

PATIENT
  Sex: Female

DRUGS (1)
  1. CHAMPIX [Suspect]
     Active Substance: VARENICLINE TARTRATE
     Dosage: UNK
     Dates: start: 20150621, end: 201506

REACTIONS (4)
  - Tremor [Unknown]
  - Haematemesis [Unknown]
  - Nausea [Unknown]
  - Insomnia [Unknown]

NARRATIVE: CASE EVENT DATE: 201506
